FAERS Safety Report 9628038 (Version 1)
Quarter: 2013Q4

REPORT INFORMATION
  Report Type: Spontaneous
  Country: US (occurrence: US)
  Receive Date: 20131016
  Receipt Date: 20131016
  Transmission Date: 20140711
  Serious: Yes (Other)
  Sender: FDA-Public Use
  Company Number: US-TEVA-437771USA

PATIENT
  Age: 29 Year
  Sex: Female
  Weight: 70.82 kg

DRUGS (2)
  1. PARAGARD 380A [Suspect]
     Indication: CONTRACEPTION
     Route: 015
     Dates: start: 20130829, end: 20130909
  2. PARAGARD 380A [Suspect]
     Indication: CONTRACEPTION
     Route: 015
     Dates: start: 20130909, end: 20130913

REACTIONS (4)
  - Device dislocation [Recovered/Resolved]
  - Genitourinary chlamydia infection [Recovered/Resolved]
  - Cervicitis [Recovered/Resolved]
  - Pelvic pain [Recovered/Resolved]
